FAERS Safety Report 5065897-3 (Version None)
Quarter: 2006Q3

REPORT INFORMATION
  Report Type: 
  Country: None (occurrence: None)
  Receive Date: 20060731
  Receipt Date: 20060719
  Transmission Date: 20061208
  Serious: Yes (Other)
  Sender: FDA-Public Use
  Company Number: 2006UW14790

PATIENT
  Age: 71 Year
  Sex: Female
  Weight: 77.1 kg

DRUGS (11)
  1. ARIMIDEX [Suspect]
     Indication: BREAST CANCER
     Route: 048
     Dates: start: 20050701
  2. ASPIRIN [Concomitant]
     Route: 048
  3. GARLIC [Concomitant]
     Route: 048
  4. FOSAMAX [Concomitant]
  5. MULTI-VITAMIN [Concomitant]
  6. FISH OIL [Concomitant]
  7. GLUCOSAMINE [Concomitant]
  8. MAGNESIUM [Concomitant]
  9. COQ10 [Concomitant]
  10. MELATONIN [Concomitant]
  11. CALCIUM GLUCONATE [Concomitant]

REACTIONS (8)
  - BACK PAIN [None]
  - BLOOD PRESSURE DIASTOLIC INCREASED [None]
  - BONE PAIN [None]
  - EYE HAEMORRHAGE [None]
  - OSTEOPENIA [None]
  - OSTEOPOROSIS [None]
  - PARAESTHESIA [None]
  - TRIGGER FINGER [None]
